FAERS Safety Report 9767500 (Version 1)
Quarter: 2013Q3

REPORT INFORMATION
  Report Type: Spontaneous
  Country: US (occurrence: None)
  Receive Date: 20130827
  Receipt Date: 20130827
  Transmission Date: 20140515
  Serious: Yes (Hospitalization)
  Sender: FDA-Public Use
  Company Number: 163-C4047-13060827

PATIENT
  Age: 56 Year
  Sex: Male
  Weight: 76 kg

DRUGS (14)
  1. CC-4047 [Suspect]
     Indication: PLASMA CELL MYELOMA
     Dosage: 4 MG, 21 IN 28 D, PO
     Dates: start: 20120720
  2. DEXAMETHASONE (DEXAMETHASONE) [Suspect]
     Indication: PLASMA CELL MYELOMA
     Dosage: 40 MG, 4 IN 28 D, PO
     Dates: start: 20120720
  3. ACYCLOVIR (ACICLOVIR) [Concomitant]
  4. ASPIRIN (ACETYLSALICYLIC ACID) [Concomitant]
  5. CLOTRIMAZOLE (CLOTRIMAZOLE) [Concomitant]
  6. INSULIN ASPART (INSULIN ASPART) [Concomitant]
  7. INSULIN GLARGINE (INSULIN GLARGINE) [Concomitant]
  8. LANSOPRAZOLE (LANSOPRAZOLE) [Concomitant]
  9. MULTIPLE VITAMINS (MULTIPLE VITAMINS) [Concomitant]
  10. BYSTOLIC (NEBIVOLOL HYDROCHLORIDE) [Concomitant]
  11. PRAVASTATIN SODIUM (PRAVASTATIN SODIUM) [Concomitant]
  12. SULFAMETHOXAZOLE-TRIMETHOPRIM (BACTRIM) [Concomitant]
  13. ZOLEDRONIC ACID (ZOLEDRONIC ACID) [Concomitant]
  14. CLARITHROMYCIN (CLARITHROMYCIN) [Suspect]
     Indication: PLASMA CELL MYELOMA
     Route: 048
     Dates: start: 20120720

REACTIONS (1)
  - Cellulitis [None]
